FAERS Safety Report 24705133 (Version 1)
Quarter: 2024Q4

REPORT INFORMATION
  Report Type: Spontaneous
  Country: US (occurrence: US)
  Receive Date: 20241206
  Receipt Date: 20241206
  Transmission Date: 20250115
  Serious: No
  Sender: COSETTE PHARMACEUTICALS INC
  Company Number: US-COSETTE-CP2024US000381

PATIENT
  Age: 87 Year
  Sex: Female
  Weight: 125 kg

DRUGS (3)
  1. NYSTATIN [Suspect]
     Active Substance: NYSTATIN
     Indication: Tongue discolouration
     Route: 048
     Dates: start: 20241120, end: 20241122
  2. NYSTATIN [Suspect]
     Active Substance: NYSTATIN
     Indication: Lip pain
     Route: 048
     Dates: start: 20241121, end: 20241122
  3. NYSTATIN [Suspect]
     Active Substance: NYSTATIN
     Indication: Chapped lips
     Route: 048
     Dates: start: 20241122, end: 20241122

REACTIONS (4)
  - Paraesthesia [Not Recovered/Not Resolved]
  - Product use issue [Unknown]
  - Application site pain [Not Recovered/Not Resolved]
  - Product use in unapproved indication [Unknown]

NARRATIVE: CASE EVENT DATE: 20241120
